FAERS Safety Report 20444977 (Version 2)
Quarter: 2022Q4

REPORT INFORMATION
  Report Type: Report from Study
  Country: US (occurrence: US)
  Receive Date: 20220208
  Receipt Date: 20221007
  Transmission Date: 20230113
  Serious: Yes (Hospitalization, Other)
  Sender: FDA-Public Use
  Company Number: US-TAKEDA-2022TUS006461

PATIENT
  Age: 60 Year
  Sex: Female

DRUGS (16)
  1. PARATHYROID HORMONE [Suspect]
     Active Substance: PARATHYROID HORMONE
     Indication: Hypoparathyroidism
     Dosage: 100 MICROGRAM, QD
     Route: 065
     Dates: start: 201610, end: 20191002
  2. PARATHYROID HORMONE [Suspect]
     Active Substance: PARATHYROID HORMONE
     Indication: Hypoparathyroidism
     Dosage: 100 MICROGRAM, QD
     Route: 065
     Dates: start: 201610, end: 20191002
  3. PARATHYROID HORMONE [Suspect]
     Active Substance: PARATHYROID HORMONE
     Indication: Hypoparathyroidism
     Dosage: 100 MICROGRAM, QD
     Route: 065
     Dates: start: 201610, end: 20191002
  4. THYROID [Concomitant]
     Active Substance: LEVOTHYROXINE\LIOTHYRONINE
     Indication: Hypothyroidism
     Dosage: UNK
     Route: 048
     Dates: start: 201502
  5. XANAX [Concomitant]
     Active Substance: ALPRAZOLAM
     Indication: Anxiety
     Dosage: UNK
     Route: 048
     Dates: start: 20150519
  6. SELENIUM [Concomitant]
     Active Substance: SELENIUM
     Indication: Anaemia vitamin B12 deficiency
     Route: 048
  7. ZINC [Concomitant]
     Active Substance: ZINC
     Dosage: UNK
     Route: 048
  8. VITAMIN B12 [Concomitant]
     Active Substance: CYANOCOBALAMIN
     Dosage: UNK
     Route: 048
  9. LORAZEPAM [Concomitant]
     Active Substance: LORAZEPAM
     Indication: Anxiety
     Dosage: UNK
     Route: 048
  10. PROGESTERONE [Concomitant]
     Active Substance: PROGESTERONE
     Indication: Vulvovaginal dryness
     Dosage: UNK
     Route: 048
     Dates: start: 20190430
  11. MENAQUINONE 6 [Concomitant]
     Active Substance: MENAQUINONE 6
     Route: 048
  12. ESTROGEN;TESTOSTERONE [Concomitant]
     Indication: Hormone level abnormal
     Dosage: UNK
     Route: 050
     Dates: start: 20190430
  13. POTASSIUM CHLORIDE [Concomitant]
     Active Substance: POTASSIUM CHLORIDE
     Indication: Seizure
     Dosage: UNK
     Route: 048
     Dates: start: 20180216, end: 20180216
  14. MAGNESIUM SULFATE [Concomitant]
     Active Substance: MAGNESIUM SULFATE
     Indication: Seizure
     Dosage: UNK
     Route: 048
     Dates: start: 20180216, end: 20180216
  15. FENTANYL [Concomitant]
     Active Substance: FENTANYL
     Indication: Seizure
     Dosage: UNK
     Route: 042
     Dates: start: 20180216, end: 20180216
  16. DIAZEPAM [Concomitant]
     Active Substance: DIAZEPAM
     Indication: Seizure
     Dosage: UNK
     Route: 042
     Dates: start: 20180216, end: 20180216

REACTIONS (1)
  - Seizure [Recovered/Resolved]

NARRATIVE: CASE EVENT DATE: 20180216
